FAERS Safety Report 18234961 (Version 2)
Quarter: 2020Q4

REPORT INFORMATION
  Report Type: Spontaneous
  Country: US (occurrence: US)
  Receive Date: 20200904
  Receipt Date: 20201124
  Transmission Date: 20210113
  Serious: Yes (Other)
  Sender: FDA-Public Use
  Company Number: US-COOPERSURGICAL, INC.-US-2020CPS002070

PATIENT
  Age: 35 Year
  Sex: Female
  Weight: 72.56 kg

DRUGS (3)
  1. STOOL SOFTENER (DOCUSATE) [Concomitant]
     Active Substance: DOCUSATE
     Indication: CONSTIPATION
     Dosage: UNK
     Route: 065
  2. PRENATAL VITAMINS                  /02014401/ [Concomitant]
     Active Substance: VITAMINS
     Indication: BREAST FEEDING
     Dosage: UNK
     Route: 065
  3. PARAGARD T 380A [Suspect]
     Active Substance: COPPER
     Indication: CONTRACEPTION
     Dosage: UNK
     Route: 015
     Dates: start: 20200821, end: 20200821

REACTIONS (6)
  - Complication of device insertion [Recovered/Resolved]
  - Procedural haemorrhage [Not Recovered/Not Resolved]
  - Unintentional medical device removal [Recovered/Resolved]
  - Device issue [Recovered/Resolved]
  - Uterine injury [Unknown]
  - Procedural pain [Not Recovered/Not Resolved]

NARRATIVE: CASE EVENT DATE: 20200821
